FAERS Safety Report 24385770 (Version 2)
Quarter: 2024Q4

REPORT INFORMATION
  Report Type: Spontaneous
  Country: FI (occurrence: FI)
  Receive Date: 20241001
  Receipt Date: 20241016
  Transmission Date: 20250114
  Serious: Yes (Other)
  Sender: MYLAN
  Company Number: FI-GLAXOSMITHKLINE-FI2024EME113607

PATIENT
  Age: 59 Year
  Sex: Female

DRUGS (4)
  1. LYRICA [Suspect]
     Active Substance: PREGABALIN
     Indication: Product used for unknown indication
     Dosage: UNK
     Route: 065
     Dates: end: 20230802
  2. NORSPAN [Suspect]
     Active Substance: BUPRENORPHINE
     Indication: Product used for unknown indication
     Dosage: 10 MICROGRAM, QH,(WE, 10 MCG/H, DEPOT PATCH)
     Route: 065
  3. ACRIVASTINE\PSEUDOEPHEDRINE HYDROCHLORIDE [Suspect]
     Active Substance: ACRIVASTINE\PSEUDOEPHEDRINE HYDROCHLORIDE
     Indication: Product used for unknown indication
     Dosage: UNK
     Route: 065
  4. MELATONIN [Concomitant]
     Active Substance: MELATONIN
     Indication: Product used for unknown indication
     Dosage: 5 MILLIGRAM X1
     Route: 065

REACTIONS (39)
  - Streptococcal sepsis [Unknown]
  - Subarachnoid haemorrhage [Unknown]
  - Ophthalmoplegia [Recovered/Resolved]
  - Headache [Unknown]
  - Blood pressure increased [Unknown]
  - Nervous system disorder [Unknown]
  - Fear of death [Recovered/Resolved]
  - Anxiety [Unknown]
  - Paraesthesia oral [Recovered/Resolved]
  - Sleep apnoea syndrome [Unknown]
  - Muscular weakness [Unknown]
  - Fear [Unknown]
  - Condition aggravated [Unknown]
  - Depression [Unknown]
  - Histrionic personality disorder [Unknown]
  - Insomnia [Unknown]
  - Oedema [Unknown]
  - Back pain [Unknown]
  - Dysphagia [Recovered/Resolved]
  - Mobility decreased [Unknown]
  - Poor quality sleep [Unknown]
  - Nausea [Unknown]
  - Hypertension [Unknown]
  - Eye movement disorder [Unknown]
  - Pain in extremity [Unknown]
  - Facial discomfort [Recovered/Resolved]
  - Blood alkaline phosphatase increased [Unknown]
  - Overweight [Unknown]
  - White matter lesion [Unknown]
  - Hyperhidrosis [Unknown]
  - Obsessive-compulsive disorder [Unknown]
  - Stress [Unknown]
  - Spinal pain [Unknown]
  - Heart rate decreased [Unknown]
  - Aphasia [Unknown]
  - Dysarthria [Recovered/Resolved]
  - Blood pressure systolic increased [Recovered/Resolved]
  - Generalised anxiety disorder [Unknown]
  - Sciatica [Unknown]

NARRATIVE: CASE EVENT DATE: 20200301
